FAERS Safety Report 4724801-5 (Version None)
Quarter: 2005Q3

REPORT INFORMATION
  Report Type: 
  Country: None (occurrence: None)
  Receive Date: 20050726
  Receipt Date: 20050714
  Transmission Date: 20060218
  Serious: Yes (Other)
  Sender: FDA-Public Use
  Company Number: DE-JNJFOC-20050702746

PATIENT
  Age: 57 Year
  Sex: Male

DRUGS (1)
  1. SEMPERA 7 [Suspect]
     Indication: ONYCHOMYCOSIS
     Route: 048
     Dates: start: 20050701, end: 20050711

REACTIONS (3)
  - DYSPNOEA EXERTIONAL [None]
  - FATIGUE [None]
  - SLEEP DISORDER [None]
